FAERS Safety Report 4401317-7 (Version None)
Quarter: 2004Q3

REPORT INFORMATION
  Report Type: 
  Country: None (occurrence: None)
  Receive Date: 20040907
  Receipt Date: 20040303
  Transmission Date: 20050211
  Serious: No
  Sender: FDA-Public Use
  Company Number: US-BRISTOL-MYERS SQUIBB COMPANY-12523809

PATIENT
  Age: 79 Year
  Sex: Male
  Weight: 95 kg

DRUGS (12)
  1. COUMADIN [Suspect]
     Indication: ARRHYTHMIA
     Dosage: 5MG- 1 TABLET DAILY
     Route: 048
     Dates: start: 20030901
  2. COUMADIN [Suspect]
     Indication: ATRIAL FLUTTER
     Dosage: 5MG- 1 TABLET DAILY
     Route: 048
     Dates: start: 20030901
  3. ZYMAR [Suspect]
     Indication: CATARACT OPERATION
     Dosage: STARTED THERAPY ^AROUND^ 11-FEB-2004- 2 WEEKS BEFORE RIGHT EYE CATARACT SURGERY.
     Route: 031
     Dates: start: 20040211
  4. ACULAR [Suspect]
     Indication: CATARACT OPERATION
     Dosage: STARTED THERAPY ^AROUND^ 11-FEB-2004- 2 WEEKS BEFORE RIGHT EYE CATARACT SURGERY.
     Route: 031
     Dates: start: 20040211
  5. PRED FORTE [Suspect]
     Indication: CATARACT OPERATION
     Dosage: DAY OF CATARACT SURGERY
     Route: 031
     Dates: start: 20040225
  6. LISINOPRIL [Concomitant]
  7. NEXIUM [Concomitant]
  8. BENTYL [Concomitant]
  9. TOPROL-XL [Concomitant]
  10. ZOCOR [Concomitant]
  11. SINEQUAN [Concomitant]
  12. ECOTRIN [Concomitant]

REACTIONS (1)
  - INTERNATIONAL NORMALISED RATIO DECREASED [None]
